FAERS Safety Report 21935281 (Version 1)
Quarter: 2023Q1

REPORT INFORMATION
  Report Type: Spontaneous
  Country: PT (occurrence: PT)
  Receive Date: 20230201
  Receipt Date: 20230201
  Transmission Date: 20230417
  Serious: Yes (Disabling)
  Sender: FDA-Public Use
  Company Number: None

PATIENT

DRUGS (1)
  1. DOVATO [Suspect]
     Active Substance: DOLUTEGRAVIR SODIUM\LAMIVUDINE
     Indication: HIV infection
     Dosage: 350 MG, QD (1 TABLET LAMIVUDINE 300 MG + DOLUTEGRAVIR 50 MG 1X/DAY)
     Route: 048
     Dates: start: 20230106, end: 20230122

REACTIONS (1)
  - Back pain [Unknown]
